FAERS Safety Report 16371257 (Version 1)
Quarter: 2019Q3

REPORT INFORMATION
  Report Type: Spontaneous
  Country: US (occurrence: US)
  Receive Date: 20190529
  Receipt Date: 20190529
  Transmission Date: 20191004
  Serious: No
  Sender: FDA-Public Use
  Company Number: None

PATIENT
  Age: 26 Year
  Sex: Female
  Weight: 54 kg

DRUGS (3)
  1. MAGNESIUM OXIDE. [Concomitant]
     Active Substance: MAGNESIUM OXIDE
  2. EMGALITY [Suspect]
     Active Substance: GALCANEZUMAB-GNLM
     Indication: MIGRAINE
     Dosage: ?          QUANTITY:1 INJECTION(S);OTHER FREQUENCY:EVERY 28-31 DAYS;?
     Route: 058
     Dates: start: 20190304, end: 20190429
  3. BOTOX FOR MIGRAINES [Concomitant]

REACTIONS (7)
  - Photosensitivity reaction [None]
  - Injection site reaction [None]
  - Nausea [None]
  - Pain in extremity [None]
  - Abnormal dreams [None]
  - Arthralgia [None]
  - Abdominal discomfort [None]

NARRATIVE: CASE EVENT DATE: 20190304
